FAERS Safety Report 7725517-3 (Version None)
Quarter: 2011Q3

REPORT INFORMATION
  Report Type: 
  Country: None (occurrence: None)
  Receive Date: 20110902
  Receipt Date: 20110510
  Transmission Date: 20111222
  Serious: No
  Sender: FDA-Public Use
  Company Number: US-BRISTOL-MYERS SQUIBB COMPANY-15734551

PATIENT

DRUGS (1)
  1. KOMBIGLYZE XR [Suspect]
     Dosage: 1DF=2.5 SAXAGLIPTIIN AND THE METFORMIN 1000 2 PILS BID VS ONCE A DAY

REACTIONS (1)
  - NAUSEA [None]
